APPROVED DRUG PRODUCT: INTRALIPID 10%
Active Ingredient: SOYBEAN OIL
Strength: 10%
Dosage Form/Route: INJECTABLE;INJECTION
Application: N017643 | Product #001
Applicant: FRESENIUS KABI DEUTSCHLAND GMBH
Approved: Approved Prior to Jan 1, 1982 | RLD: Yes | RS: No | Type: DISCN